FAERS Safety Report 18425645 (Version 1)
Quarter: 2020Q4

REPORT INFORMATION
  Report Type: Spontaneous
  Country: US (occurrence: US)
  Receive Date: 20201025
  Receipt Date: 20201025
  Transmission Date: 20210114
  Serious: No
  Sender: FDA-Public Use
  Company Number: None

PATIENT
  Sex: Female

DRUGS (1)
  1. BESAFE HAND SANITIZER [Suspect]
     Active Substance: ALCOHOL
     Indication: COVID-19 PROPHYLAXIS
     Dates: start: 20200930, end: 20200930

REACTIONS (2)
  - Sticky skin [None]
  - Drug ineffective [None]

NARRATIVE: CASE EVENT DATE: 20200930
